FAERS Safety Report 8974306 (Version 2)
Quarter: 2013Q1

REPORT INFORMATION
  Report Type: Spontaneous
  Country: US (occurrence: None)
  Receive Date: 20121211
  Receipt Date: 20130118
  Transmission Date: 20140127
  Serious: Yes (Disabling, Other)
  Sender: FDA-Public Use
  Company Number: ACO_33260_2012

PATIENT
  Age: 53 Year
  Sex: Female

DRUGS (2)
  1. AMPYRA (DALFAMPRIDINE) TABLET, 10MG [Suspect]
     Indication: PRODUCT USED FOR UNKNOWN INDICATION
     Dates: start: 201104
  2. CALCIUM (CALCIUM) [Concomitant]

REACTIONS (7)
  - Movement disorder [None]
  - Depression [None]
  - Anxiety [None]
  - Fall [None]
  - Contusion [None]
  - Bronchitis [None]
  - Mouth injury [None]
